FAERS Safety Report 8140036 (Version 3)
Quarter: 2014Q1

REPORT INFORMATION
  Report Type: Spontaneous
  Country: US (occurrence: US)
  Receive Date: 20110916
  Receipt Date: 20140331
  Transmission Date: 20141002
  Serious: Yes (Other)
  Sender: FDA-Public Use
  Company Number: US-AMGEN-USASP2011046936

PATIENT
  Age: 0 Day
  Sex: Female
  Weight: 2.6 kg

DRUGS (1)
  1. ENBREL [Suspect]
     Indication: PRODUCT USED FOR UNKNOWN INDICATION
     Dosage: 50 MG, QWK
     Route: 064
     Dates: start: 20060101, end: 200911

REACTIONS (2)
  - Neonatal aspiration [Recovered/Resolved]
  - Pneumonia aspiration [Recovered/Resolved]
